FAERS Safety Report 12296666 (Version 1)
Quarter: 2016Q2

REPORT INFORMATION
  Report Type: Spontaneous
  Country: US (occurrence: US)
  Receive Date: 20160422
  Receipt Date: 20160422
  Transmission Date: 20160815
  Serious: Yes (Hospitalization)
  Sender: FDA-Public Use
  Company Number: US-BAXALTA-2016BLT002499

PATIENT
  Age: 10 Year
  Sex: Female
  Weight: 37.6 kg

DRUGS (2)
  1. ONCASPAR [Suspect]
     Active Substance: PEGASPARGASE
     Indication: ACUTE LYMPHOCYTIC LEUKAEMIA
     Dosage: 3125 U, 2ND DOSE
     Route: 042
     Dates: start: 20160414, end: 20160414
  2. ONCASPAR [Suspect]
     Active Substance: PEGASPARGASE
     Dosage: UNK, 1ST DOSE
     Route: 065

REACTIONS (5)
  - Vomiting [Unknown]
  - Urinary incontinence [Unknown]
  - Blood pressure decreased [Unknown]
  - Dyspnoea [Unknown]
  - Pulse absent [Unknown]

NARRATIVE: CASE EVENT DATE: 20160414
